FAERS Safety Report 10692938 (Version 1)
Quarter: 2015Q1

REPORT INFORMATION
  Report Type: Spontaneous
  Country: TW (occurrence: TW)
  Receive Date: 20150106
  Receipt Date: 20150106
  Transmission Date: 20150720
  Serious: Yes (Other)
  Sender: FDA-Public Use
  Company Number: TW-CUBIST PHARMACEUTICALS, INC.-2014CBST001748

PATIENT

DRUGS (6)
  1. MOXIFLOXACIN                       /01453202/ [Concomitant]
     Indication: ABDOMINAL INFECTION
     Dosage: 400 MG, QD
     Route: 042
  2. CUBICIN [Suspect]
     Active Substance: DAPTOMYCIN
     Indication: STAPHYLOCOCCAL BACTERAEMIA
     Dosage: 8 MG/KG, QD
     Route: 042
  3. CUBICIN [Suspect]
     Active Substance: DAPTOMYCIN
     Indication: OFF LABEL USE
  4. OXACILLIN                          /00040802/ [Concomitant]
     Indication: BACTERIAL INFECTION
     Dosage: 2 G, Q4H
     Route: 042
  5. CUBICIN [Suspect]
     Active Substance: DAPTOMYCIN
     Indication: COMMUNITY ACQUIRED INFECTION
     Dosage: 8 MG/KG, QD
     Route: 042
  6. CUBICIN [Suspect]
     Active Substance: DAPTOMYCIN
     Indication: SPLENIC ABSCESS

REACTIONS (3)
  - Brain abscess [Recovered/Resolved with Sequelae]
  - Splenic abscess [None]
  - Off label use [Unknown]
